FAERS Safety Report 9255899 (Version 2)
Quarter: 2013Q3

REPORT INFORMATION
  Report Type: Spontaneous
  Country: BR (occurrence: BR)
  Receive Date: 20130425
  Receipt Date: 20130725
  Transmission Date: 20140515
  Serious: Yes (Death, Hospitalization, Other)
  Sender: FDA-Public Use
  Company Number: BR-ACTELION-A-CH2013-82420

PATIENT
  Age: 14 Year
  Sex: Female

DRUGS (5)
  1. ZAVESCA [Suspect]
     Indication: NIEMANN-PICK DISEASE
     Dosage: UNK
     Route: 048
     Dates: start: 200509, end: 20130223
  2. TRILEPTAL [Concomitant]
  3. DEPAKOTE [Concomitant]
  4. LAMICTAL [Concomitant]
  5. TOPAMAX [Concomitant]

REACTIONS (8)
  - Niemann-Pick disease [Fatal]
  - Disease progression [Fatal]
  - Respiratory arrest [Fatal]
  - Epilepsy [Unknown]
  - Walking disability [Fatal]
  - Aphasia [Fatal]
  - Gastrostomy [Unknown]
  - Increased bronchial secretion [Unknown]
